FAERS Safety Report 19460101 (Version 1)
Quarter: 2021Q2

REPORT INFORMATION
  Report Type: Spontaneous
  Country: JP (occurrence: JP)
  Receive Date: 20210625
  Receipt Date: 20210625
  Transmission Date: 20210717
  Serious: Yes (Other)
  Sender: FDA-Public Use
  Company Number: JP-BEH-2021133179

PATIENT
  Age: 39 Year
  Sex: Female
  Weight: 48 kg

DRUGS (1)
  1. HIZENTRA [Suspect]
     Active Substance: HUMAN IMMUNOGLOBULIN G
     Indication: CHRONIC INFLAMMATORY DEMYELINATING POLYRADICULONEUROPATHY
     Dosage: 16 GRAM, QW
     Route: 058
     Dates: start: 20200213

REACTIONS (3)
  - Muscle atrophy [Unknown]
  - Grip strength decreased [Unknown]
  - Chronic inflammatory demyelinating polyradiculoneuropathy [Unknown]

NARRATIVE: CASE EVENT DATE: 20210615
